FAERS Safety Report 12543722 (Version 1)
Quarter: 2016Q3

REPORT INFORMATION
  Report Type: Spontaneous
  Country: US (occurrence: None)
  Receive Date: 20160708
  Receipt Date: 20160708
  Transmission Date: 20161109
  Serious: Yes (Disabling)
  Sender: FDA-Public Use
  Company Number: None

PATIENT
  Age: 67 Year
  Sex: Female
  Weight: 77.11 kg

DRUGS (3)
  1. BAYER LOW DOSE [Concomitant]
     Active Substance: ASPIRIN
  2. VITAMIN D2 [Suspect]
     Active Substance: ERGOCALCIFEROL
     Indication: VITAMIN D DECREASED
     Route: 048
     Dates: start: 20160423
  3. XANAX [Concomitant]
     Active Substance: ALPRAZOLAM

REACTIONS (11)
  - Nausea [None]
  - Arthralgia [None]
  - Gait disturbance [None]
  - Cystitis [None]
  - Bone pain [None]
  - Drug resistance [None]
  - Headache [None]
  - Pollakiuria [None]
  - Joint swelling [None]
  - Skin discolouration [None]
  - Hepatic enzyme increased [None]

NARRATIVE: CASE EVENT DATE: 20160425
